FAERS Safety Report 7492144-5 (Version None)
Quarter: 2011Q1

REPORT INFORMATION
  Report Type: 
  Country: None (occurrence: None)
  Receive Date: 20110318
  Receipt Date: 20100315
  Transmission Date: 20110831
  Serious: Yes (Hospitalization, Other)
  Sender: FDA-Public Use
  Company Number: 2010SP007833

PATIENT
  Age: 52 Year
  Sex: Male

DRUGS (4)
  1. HADOLOL [Concomitant]
  2. FOLIC ACID [Concomitant]
  3. RIBASPHERE [Suspect]
     Indication: HEPATITIS C
     Dosage: 600 MG; BID; PO
     Route: 048
     Dates: start: 20091017
  4. PEG-INTRON [Suspect]
     Indication: HEPATITIS C
     Dosage: 150 MCG; QW; SC
     Route: 058
     Dates: start: 20091017

REACTIONS (6)
  - HEPATIC ENCEPHALOPATHY [None]
  - INFLUENZA [None]
  - TYPE 2 DIABETES MELLITUS [None]
  - GAIT DISTURBANCE [None]
  - SOMNOLENCE [None]
  - ASTHENIA [None]
